FAERS Safety Report 25524563 (Version 1)
Quarter: 2025Q3

REPORT INFORMATION
  Report Type: Report from Study
  Country: US (occurrence: US)
  Receive Date: 20250707
  Receipt Date: 20250707
  Transmission Date: 20251021
  Serious: Yes (Hospitalization)
  Sender: EISAI
  Company Number: US-Eisai-EC-2025-192460

PATIENT
  Age: 79 Year
  Sex: Female

DRUGS (3)
  1. LENVIMA [Suspect]
     Active Substance: LENVATINIB
     Indication: Thyroid cancer
     Dates: start: 20250129, end: 20250204
  2. LENVIMA [Suspect]
     Active Substance: LENVATINIB
     Dates: start: 20250205, end: 20250211
  3. LENVIMA [Suspect]
     Active Substance: LENVATINIB
     Dates: start: 20250212, end: 202506

REACTIONS (1)
  - Hallucination [Recovered/Resolved]

NARRATIVE: CASE EVENT DATE: 20250601
